FAERS Safety Report 9238808 (Version 1)
Quarter: 2013Q1

REPORT INFORMATION
  Report Type: Spontaneous
  Country: US (occurrence: None)
  Receive Date: 20121113
  Receipt Date: 20121113
  Transmission Date: 20140127
  Serious: Yes (Other)
  Sender: FDA-Public Use
  Company Number: PHEH2012US002380

PATIENT
  Age: 46 Year
  Sex: Female
  Weight: 75.3 kg

DRUGS (3)
  1. TRILEPTAL [Suspect]
     Indication: EPILEPSY
     Route: 048
     Dates: start: 20110112, end: 20120201
  2. KEPPRA (LEVETIRACETAM) [Concomitant]
  3. OMEPRAZOL (OMEPRAZOLE) [Concomitant]

REACTIONS (5)
  - Suicidal ideation [None]
  - Depression [None]
  - Decreased appetite [None]
  - Hypersomnia [None]
  - Drug intolerance [None]
